FAERS Safety Report 5387958-1 (Version None)
Quarter: 2007Q3

REPORT INFORMATION
  Report Type: 
  Country: None (occurrence: None)
  Receive Date: 20070716
  Receipt Date: 20061002
  Transmission Date: 20080115
  Serious: No
  Sender: FDA-Public Use
  Company Number: A0621879A

PATIENT
  Age: 53 Year
  Sex: Female

DRUGS (1)
  1. NICORETTE (MINT) [Suspect]
     Dates: start: 20060912

REACTIONS (6)
  - EAR DISORDER [None]
  - EAR PAIN [None]
  - FEELING ABNORMAL [None]
  - HYPERSENSITIVITY [None]
  - LACRIMATION INCREASED [None]
  - SINUS DISORDER [None]
